FAERS Safety Report 6541088-1 (Version None)
Quarter: 2010Q1

REPORT INFORMATION
  Report Type: 
  Country: None (occurrence: None)
  Receive Date: 20100118
  Receipt Date: 20100113
  Transmission Date: 20100710
  Serious: Yes (Other)
  Sender: FDA-Public Use
  Company Number: DE-BAYER-201010503GPV

PATIENT
  Age: 50 Year
  Sex: Female
  Weight: 102 kg

DRUGS (1)
  1. BETAFERON [Suspect]
     Indication: MULTIPLE SCLEROSIS
     Route: 058
     Dates: start: 20060101, end: 20090101

REACTIONS (7)
  - ARRHYTHMIA [None]
  - BURNING SENSATION [None]
  - ERYTHEMA [None]
  - MUSCLE SPASTICITY [None]
  - RASH PRURITIC [None]
  - SKIN DISCOLOURATION [None]
  - SKIN REACTION [None]
